FAERS Safety Report 9059468 (Version 1)
Quarter: 2013Q1

REPORT INFORMATION
  Report Type: Spontaneous
  Country: DE (occurrence: DE)
  Receive Date: 20130211
  Receipt Date: 20130211
  Transmission Date: 20140127
  Serious: Yes (Death)
  Sender: FDA-Public Use
  Company Number: GXKR2013DE000816

PATIENT
  Age: 68 Year
  Sex: Male
  Weight: 102 kg

DRUGS (1)
  1. OXALIPLATIN [Suspect]
     Indication: COLON CANCER
     Dosage: 85 MG/M2
     Route: 042
     Dates: start: 20120730, end: 20120730

REACTIONS (1)
  - Cardiac arrest [Fatal]
